FAERS Safety Report 5536518-8 (Version None)
Quarter: 2007Q4

REPORT INFORMATION
  Report Type: 
  Country: None (occurrence: None)
  Receive Date: 20071206
  Receipt Date: 20071005
  Transmission Date: 20080405
  Serious: Yes (Hospitalization)
  Sender: FDA-Public Use
  Company Number: US-AMGEN-STX246746

PATIENT
  Sex: Female

DRUGS (1)
  1. ENBREL [Suspect]
     Indication: PSORIATIC ARTHROPATHY
     Route: 058
     Dates: start: 20030804

REACTIONS (4)
  - ARTHRALGIA [None]
  - JOINT STIFFNESS [None]
  - KIDNEY INFECTION [None]
  - TOOTH ABSCESS [None]
